FAERS Safety Report 20774364 (Version 1)
Quarter: 2022Q2

REPORT INFORMATION
  Report Type: Spontaneous
  Country: FR (occurrence: FR)
  Receive Date: 20220502
  Receipt Date: 20220502
  Transmission Date: 20220720
  Serious: Yes (Hospitalization, Congenital Anomaly, Other)
  Sender: FDA-Public Use
  Company Number: FR-ABBVIE-22K-056-4374671-00

PATIENT
  Age: 0 Year
  Sex: Male
  Weight: 3.83 kg

DRUGS (2)
  1. DEPAKENE [Suspect]
     Active Substance: VALPROIC ACID
     Indication: Maternal exposure timing unspecified
     Route: 064
     Dates: start: 199901, end: 19990904
  2. PHENOBARBITAL [Concomitant]
     Active Substance: PHENOBARBITAL
     Indication: Maternal exposure timing unspecified
     Route: 064

REACTIONS (9)
  - Autism spectrum disorder [Unknown]
  - Foetal exposure during pregnancy [Unknown]
  - Dysmorphism [Unknown]
  - Deafness [Unknown]
  - Visual impairment [Unknown]
  - Learning disability [Unknown]
  - Psychomotor skills impaired [Unknown]
  - Behaviour disorder [Unknown]
  - Social problem [Unknown]

NARRATIVE: CASE EVENT DATE: 19990904
